FAERS Safety Report 15619701 (Version 1)
Quarter: 2018Q4

REPORT INFORMATION
  Report Type: Spontaneous
  Country: JP (occurrence: JP)
  Receive Date: 20181115
  Receipt Date: 20181115
  Transmission Date: 20190205
  Serious: Yes (Other)
  Sender: FDA-Public Use
  Company Number: JP-TEVA-2018-JP-006134J

PATIENT
  Sex: Female
  Weight: 37 kg

DRUGS (3)
  1. CERCINE [Suspect]
     Active Substance: DIAZEPAM
     Indication: CONFUSIONAL STATE
     Route: 048
     Dates: start: 201810
  2. VALTREX [Concomitant]
     Active Substance: VALACYCLOVIR HYDROCHLORIDE
     Indication: HERPES ZOSTER
     Route: 048
     Dates: start: 201807
  3. CERCINE [Suspect]
     Active Substance: DIAZEPAM
     Indication: ABNORMAL BEHAVIOUR

REACTIONS (6)
  - Suicide attempt [Unknown]
  - Insomnia [Not Recovered/Not Resolved]
  - Weight decreased [Unknown]
  - Vomiting [Not Recovered/Not Resolved]
  - Nausea [Not Recovered/Not Resolved]
  - Incorrect route of product administration [Unknown]

NARRATIVE: CASE EVENT DATE: 201810
